FAERS Safety Report 16371441 (Version 1)
Quarter: 2019Q2

REPORT INFORMATION
  Report Type: Spontaneous
  Country: CN (occurrence: CN)
  Receive Date: 20190530
  Receipt Date: 20190530
  Transmission Date: 20190711
  Serious: Yes (Other)
  Sender: FDA-Public Use
  Company Number: CN-PFIZER INC-2019223299

PATIENT
  Age: 69 Year
  Sex: Male
  Weight: 54.5 kg

DRUGS (1)
  1. ZYVOX [Suspect]
     Active Substance: LINEZOLID
     Indication: INFECTION
     Dosage: 600 MG, 2X/DAY
     Route: 041
     Dates: start: 20190517, end: 20190523

REACTIONS (4)
  - Abdominal distension [Recovering/Resolving]
  - Product use in unapproved indication [Unknown]
  - Off label use [Unknown]
  - Abdominal pain [Recovering/Resolving]

NARRATIVE: CASE EVENT DATE: 20190517
